FAERS Safety Report 22100615 (Version 1)
Quarter: 2023Q1

REPORT INFORMATION
  Report Type: Report from Study
  Country: US (occurrence: US)
  Receive Date: 20230316
  Receipt Date: 20230316
  Transmission Date: 20230418
  Serious: Yes (Death, Other)
  Sender: FDA-Public Use
  Company Number: US-ABBVIE-4341516

PATIENT
  Sex: Male
  Weight: 68.038 kg

DRUGS (1)
  1. CREON [Suspect]
     Active Substance: PANCRELIPASE AMYLASE\PANCRELIPASE LIPASE\PANCRELIPASE PROTEASE
     Indication: Pancreatic carcinoma
     Route: 048
     Dates: start: 2015, end: 20230305

REACTIONS (7)
  - Pancreatic carcinoma [Fatal]
  - Neuroendocrine tumour [Unknown]
  - Hepatic neoplasm [Unknown]
  - Blood glucose decreased [Unknown]
  - Weight decreased [Unknown]
  - Insulinoma [Fatal]
  - Hepatic cancer [Unknown]

NARRATIVE: CASE EVENT DATE: 20150101
